FAERS Safety Report 7787573-6 (Version None)
Quarter: 2011Q3

REPORT INFORMATION
  Report Type: 
  Country: None (occurrence: None)
  Receive Date: 20110929
  Receipt Date: 20110922
  Transmission Date: 20111222
  Serious: Yes (Hospitalization)
  Sender: FDA-Public Use
  Company Number: US-B.I. PHARMACEUTICALS,INC./RIDGEFIELD-2011-BP-16759BP

PATIENT
  Age: 59 Year
  Sex: Male
  Weight: 103.42 kg

DRUGS (11)
  1. AMBIEN [Concomitant]
     Indication: SLEEP DISORDER
     Dosage: 10 MG
  2. LISINOPRIL [Concomitant]
     Indication: HYPERTENSION
     Dosage: 20 MG
  3. LIPITOR [Concomitant]
     Indication: BLOOD CHOLESTEROL INCREASED
     Dosage: 40 MG
  4. NEURONTIN [Concomitant]
     Dosage: 300 MG
  5. BACLOFEN [Concomitant]
     Dosage: 30 MG
  6. HYDROCHLOROTHIAZIDE [Concomitant]
     Dosage: 25 MG
  7. PRADAXA [Suspect]
     Indication: ATRIAL FIBRILLATION
     Dosage: 300 MG
     Route: 048
     Dates: start: 20110324, end: 20110607
  8. ASPIRIN [Concomitant]
     Dosage: 325 MG
  9. LORTAB [Concomitant]
     Indication: MULTIPLE ALLERGIES
  10. METOPROLOL TARTRATE [Concomitant]
     Indication: ATRIAL FIBRILLATION
     Dosage: 25 MG
  11. TERAZOSIN HCL [Concomitant]
     Indication: PROSTATOMEGALY
     Dosage: 2 MG

REACTIONS (3)
  - PAIN IN EXTREMITY [None]
  - DEEP VEIN THROMBOSIS [None]
  - OEDEMA PERIPHERAL [None]
